FAERS Safety Report 11511888 (Version 1)
Quarter: 2015Q3

REPORT INFORMATION
  Report Type: Spontaneous
  Country: US (occurrence: US)
  Receive Date: 20150916
  Receipt Date: 20150916
  Transmission Date: 20151125
  Serious: Yes (Hospitalization)
  Sender: FDA-Public Use
  Company Number: US-HOSPIRA-3006119

PATIENT
  Age: 16 Year
  Sex: Male
  Weight: 55.1 kg

DRUGS (6)
  1. DEXAMETHASONE. [Suspect]
     Active Substance: DEXAMETHASONE
     Indication: ANAPLASTIC LARGE CELL LYMPHOMA T- AND NULL-CELL TYPES
     Route: 048
     Dates: start: 20140413
  2. METHOTREXATE [Suspect]
     Active Substance: METHOTREXATE
     Indication: ANAPLASTIC LARGE CELL LYMPHOMA T- AND NULL-CELL TYPES
     Route: 042
     Dates: start: 20140413
  3. ETOPOSIDE. [Suspect]
     Active Substance: ETOPOSIDE
     Indication: ANAPLASTIC LARGE CELL LYMPHOMA T- AND NULL-CELL TYPES
     Route: 042
     Dates: start: 20140413
  4. IFOSFAMIDE. [Suspect]
     Active Substance: IFOSFAMIDE
     Indication: ANAPLASTIC LARGE CELL LYMPHOMA T- AND NULL-CELL TYPES
     Route: 042
     Dates: start: 20140413
  5. CRIZOTINIB [Suspect]
     Active Substance: CRIZOTINIB
     Indication: ANAPLASTIC LARGE CELL LYMPHOMA T- AND NULL-CELL TYPES
     Route: 048
     Dates: start: 20140413
  6. CYTARABINE. [Suspect]
     Active Substance: CYTARABINE
     Indication: ANAPLASTIC LARGE CELL LYMPHOMA T- AND NULL-CELL TYPES
     Route: 042
     Dates: start: 20140413

REACTIONS (5)
  - Hypophagia [Unknown]
  - Stomatitis [Recovering/Resolving]
  - Asthenia [Unknown]
  - Dehydration [Recovered/Resolved]
  - Fatigue [Unknown]

NARRATIVE: CASE EVENT DATE: 20140415
